FAERS Safety Report 22274543 (Version 2)
Quarter: 2023Q2

REPORT INFORMATION
  Report Type: Report from Study
  Country: US (occurrence: US)
  Receive Date: 20230502
  Receipt Date: 20230517
  Transmission Date: 20230721
  Serious: Yes (Hospitalization)
  Sender: FDA-Public Use
  Company Number: US-EXELIXIS-XL18423062430

PATIENT

DRUGS (3)
  1. CABOZANTINIB [Suspect]
     Active Substance: CABOZANTINIB
     Indication: Neuroendocrine tumour
     Dosage: 60 MG, QD DAYS 1-21 (OF 21 DAY CYCLE)
     Route: 048
     Dates: start: 20220809, end: 20221107
  2. CABOZANTINIB [Suspect]
     Active Substance: CABOZANTINIB
     Indication: Metastases to pancreas
     Dosage: 40 MG, QDDAYS 1-21 (OF 21 DAY CYCLE)
     Route: 048
     Dates: start: 20221108, end: 20230213
  3. CABOZANTINIB [Suspect]
     Active Substance: CABOZANTINIB
     Indication: Metastases to liver
     Dosage: 20 MG, QD DAYS 1-21 (OF 21 DAY CYCLE)
     Route: 048
     Dates: start: 20230214

REACTIONS (3)
  - Presyncope [Recovering/Resolving]
  - Dyspnoea [Recovering/Resolving]
  - Syncope [Recovered/Resolved]

NARRATIVE: CASE EVENT DATE: 20230330
